FAERS Safety Report 17324382 (Version 1)
Quarter: 2020Q1

REPORT INFORMATION
  Report Type: Spontaneous
  Country: NL (occurrence: NL)
  Receive Date: 20200127
  Receipt Date: 20200127
  Transmission Date: 20200409
  Serious: Yes (Death)
  Sender: FDA-Public Use
  Company Number: NL-TERSERA THERAPEUTICS LLC-2020TRS000160

PATIENT

DRUGS (1)
  1. ZOLADEX [Suspect]
     Active Substance: GOSERELIN ACETATE
     Indication: PROSTATE CANCER
     Dosage: 10.8 MILLIGRAM, EVERY 3 MONTH
     Route: 058
     Dates: start: 20170123, end: 20191028

REACTIONS (1)
  - Death [Fatal]

NARRATIVE: CASE EVENT DATE: 20191031
